FAERS Safety Report 7335602-6 (Version None)
Quarter: 2011Q1

REPORT INFORMATION
  Report Type: 
  Country: None (occurrence: None)
  Receive Date: 20110307
  Receipt Date: 20110223
  Transmission Date: 20110831
  Serious: Yes (Other)
  Sender: FDA-Public Use
  Company Number: FI-SANOFI-AVENTIS-2011SA011818

PATIENT
  Age: 65 Year
  Sex: Male

DRUGS (9)
  1. MICARDIS HCT [Suspect]
     Indication: HYPERTENSION
     Route: 048
     Dates: start: 20110117, end: 20110120
  2. MICARDIS [Concomitant]
     Indication: HYPERTENSION
     Route: 048
     Dates: start: 20110114, end: 20110117
  3. BISOPROLOL FUMARATE [Concomitant]
     Route: 048
     Dates: start: 20110117
  4. WARFARIN [Concomitant]
     Indication: ATRIAL FIBRILLATION
     Route: 048
  5. PRIMASPAN [Concomitant]
     Indication: CORONARY ARTERY DISEASE
     Route: 048
  6. PLENDIL [Suspect]
     Indication: HYPERTENSION
     Route: 048
     Dates: start: 20110117, end: 20110120
  7. INVESTIGATIONAL DRUG [Concomitant]
     Route: 048
     Dates: end: 20110127
  8. MULTAQ [Interacting]
     Indication: ATRIAL FIBRILLATION
     Route: 048
     Dates: start: 20110117, end: 20110120
  9. SIMVASTATIN [Suspect]
     Route: 048

REACTIONS (3)
  - ORTHOSTATIC HYPOTENSION [None]
  - DRUG INTERACTION [None]
  - DIZZINESS [None]
